FAERS Safety Report 13744886 (Version 1)
Quarter: 2017Q3

REPORT INFORMATION
  Report Type: Spontaneous
  Country: US (occurrence: US)
  Receive Date: 20170711
  Receipt Date: 20170711
  Transmission Date: 20171127
  Serious: Yes (Hospitalization)
  Sender: FDA-Public Use
  Company Number: None

PATIENT
  Age: 59 Year
  Sex: Male
  Weight: 109 kg

DRUGS (8)
  1. METFORMIN [Concomitant]
     Active Substance: METFORMIN HYDROCHLORIDE
  2. ASPIRIN. [Concomitant]
     Active Substance: ASPIRIN
  3. INVOKANA [Suspect]
     Active Substance: CANAGLIFLOZIN
     Indication: TYPE 2 DIABETES MELLITUS
     Dosage: ?          OTHER DOSE:MG;?
     Route: 048
     Dates: start: 20170125, end: 20170130
  4. HYDROCHLOROTHIAZIDE AND LISINOPRIL [Concomitant]
     Active Substance: HYDROCHLOROTHIAZIDE\LISINOPRIL
  5. AMLODIPINE [Concomitant]
     Active Substance: AMLODIPINE BESYLATE
  6. CARVEDILOL. [Concomitant]
     Active Substance: CARVEDILOL
  7. PRAVASTATIN. [Concomitant]
     Active Substance: PRAVASTATIN
  8. NAPROXEN. [Concomitant]
     Active Substance: NAPROXEN

REACTIONS (10)
  - Asthenia [None]
  - Ketoacidosis [None]
  - Lactic acidosis [None]
  - Blood creatinine increased [None]
  - Anion gap increased [None]
  - Dizziness [None]
  - Blood glucose increased [None]
  - Hyperventilation [None]
  - Blood ketone body [None]
  - Confusional state [None]

NARRATIVE: CASE EVENT DATE: 20170130
